FAERS Safety Report 23235763 (Version 2)
Quarter: 2024Q2

REPORT INFORMATION
  Report Type: Spontaneous
  Country: NO (occurrence: NO)
  Receive Date: 20231128
  Receipt Date: 20240606
  Transmission Date: 20240716
  Serious: Yes (Hospitalization, Disabling, Other)
  Sender: FDA-Public Use
  Company Number: None

PATIENT
  Age: 33 Year
  Sex: Male
  Weight: 70 kg

DRUGS (1)
  1. ZOLPIDEM TARTRATE [Suspect]
     Active Substance: ZOLPIDEM TARTRATE
     Indication: Sleep disorder
     Dosage: 10 MG
     Route: 048
     Dates: start: 2004

REACTIONS (15)
  - Dependence [Not Recovered/Not Resolved]
  - Tremor [Not Recovered/Not Resolved]
  - Hypotension [Not Recovered/Not Resolved]
  - Craniofacial fracture [Unknown]
  - Syncope [Unknown]
  - Insomnia [Unknown]
  - Dyspnoea [Unknown]
  - Panic reaction [Unknown]
  - Diplopia [Unknown]
  - Pain [Unknown]
  - Hypersensitivity [Unknown]
  - Fatigue [Unknown]
  - Restlessness [Unknown]
  - Headache [Unknown]
  - Anxiety [Unknown]

NARRATIVE: CASE EVENT DATE: 20040601
